FAERS Safety Report 7782588-6 (Version None)
Quarter: 2011Q3

REPORT INFORMATION
  Report Type: 
  Country: None (occurrence: None)
  Receive Date: 20110928
  Receipt Date: 20110915
  Transmission Date: 20111222
  Serious: Yes (Other)
  Sender: FDA-Public Use
  Company Number: CH-US-EMD SERONO, INC.-230013J09CHE

PATIENT
  Sex: Female
  Weight: 54 kg

DRUGS (8)
  1. IBUPROFEN [Concomitant]
     Indication: MIGRAINE
     Route: 048
  2. REBIF [Suspect]
     Route: 058
     Dates: start: 20091001, end: 20091101
  3. MAXALT [Concomitant]
     Indication: MIGRAINE
     Route: 048
  4. REBIF [Suspect]
     Route: 058
     Dates: start: 20091201, end: 20110901
  5. ACETAMINOPHEN [Concomitant]
     Indication: INFLUENZA LIKE ILLNESS
     Route: 048
  6. REBIF [Suspect]
     Indication: MULTIPLE SCLEROSIS
     Route: 058
     Dates: start: 20030926, end: 20090401
  7. REBIF [Suspect]
     Route: 058
     Dates: start: 20090101, end: 20090901
  8. MAXALT [Concomitant]
     Indication: INFLUENZA LIKE ILLNESS

REACTIONS (4)
  - HEPATIC ENZYME INCREASED [None]
  - PERIPHERAL COLDNESS [None]
  - RAYNAUD'S PHENOMENON [None]
  - RETINAL HAEMORRHAGE [None]
